FAERS Safety Report 7535625-8 (Version None)
Quarter: 2011Q2

REPORT INFORMATION
  Report Type: 
  Country: None (occurrence: None)
  Receive Date: 20110609
  Receipt Date: 20110520
  Transmission Date: 20111010
  Serious: Yes (Hospitalization)
  Sender: FDA-Public Use
  Company Number: US-BAYER-201038526NA

PATIENT
  Age: 16 Year
  Sex: Female
  Weight: 58.503 kg

DRUGS (7)
  1. NORCO [Concomitant]
     Indication: PAIN
     Dosage: UNK
  2. TYLENOL W/ CODEINE NO. 3 [Concomitant]
     Indication: PAIN
  3. YAZ [Suspect]
     Indication: CONTRACEPTION
  4. MORPHINE [Concomitant]
     Indication: PAIN
     Dosage: UNK
     Dates: start: 20090721
  5. YAZ [Suspect]
     Indication: PREMENSTRUAL SYNDROME
  6. YAZ [Suspect]
     Indication: ACNE
     Dosage: UNK UNK, QD
     Route: 048
     Dates: start: 20081112, end: 20090721
  7. IBORUFEN [Concomitant]

REACTIONS (8)
  - PULMONARY INFARCTION [None]
  - DEEP VEIN THROMBOSIS [None]
  - PELVIC PAIN [None]
  - PAIN [None]
  - MUSCULOSKELETAL PAIN [None]
  - PAIN IN EXTREMITY [None]
  - PULMONARY EMBOLISM [None]
  - NAUSEA [None]
